FAERS Safety Report 4718415-0 (Version None)
Quarter: 2005Q3

REPORT INFORMATION
  Report Type: 
  Country: None (occurrence: None)
  Receive Date: 20050720
  Receipt Date: 20040902
  Transmission Date: 20060218
  Serious: Yes (Hospitalization)
  Sender: FDA-Public Use
  Company Number: JP-MERCK-0409USA00452

PATIENT
  Age: 63 Year
  Sex: Male

DRUGS (3)
  1. FOSAMAX [Suspect]
     Indication: OSTEOPOROSIS
     Route: 048
     Dates: start: 20040101, end: 20040801
  2. ALLOID G [Concomitant]
     Route: 048
  3. FUNGIZONE [Concomitant]
     Route: 065
     Dates: start: 20040801

REACTIONS (2)
  - CANDIDIASIS [None]
  - OESOPHAGEAL STENOSIS [None]
